FAERS Safety Report 8427515-3 (Version None)
Quarter: 2012Q2

REPORT INFORMATION
  Report Type: 
  Country: None (occurrence: None)
  Receive Date: 20120611
  Receipt Date: 20120531
  Transmission Date: 20120825
  Serious: Yes (Hospitalization)
  Sender: FDA-Public Use
  Company Number: US-BRISTOL-MYERS SQUIBB COMPANY-16651549

PATIENT
  Age: 43 Year
  Sex: Female

DRUGS (3)
  1. METHOTREXATE [Concomitant]
  2. ORENCIA [Suspect]
     Dosage: LAST INF IN MAY2012
     Route: 042
  3. COUMADIN [Concomitant]

REACTIONS (1)
  - THROMBOSIS [None]
